FAERS Safety Report 15922360 (Version 6)
Quarter: 2019Q1

REPORT INFORMATION
  Report Type: Report from Study
  Country: None (occurrence: CH)
  Receive Date: 20190206
  Receipt Date: 20190315
  Transmission Date: 20190417
  Serious: Yes (Death, Hospitalization, Other)
  Sender: FDA-Public Use
  Company Number: CH-ABBVIE-19S-151-2633196-00

PATIENT
  Age: 80 Year
  Sex: Female

DRUGS (9)
  1. DUODOPA [Suspect]
     Active Substance: CARBIDOPA\LEVODOPA
     Dosage: MD: 2.4 ML, CRD: 1 ML/H, ED: 0.5 ML?16H THERAPY
     Route: 050
     Dates: start: 20180923, end: 20181130
  2. DUODOPA [Suspect]
     Active Substance: CARBIDOPA\LEVODOPA
     Dosage: MD: 2.2 ML, CRD: 1.2ML/H, ED: 0.5 ML?16H THERAPY
     Route: 050
     Dates: start: 20190129, end: 201901
  3. CANNABIS DROPS [Concomitant]
     Dates: start: 20190130
  4. DUODOPA [Suspect]
     Active Substance: CARBIDOPA\LEVODOPA
     Indication: PARKINSON^S DISEASE
     Route: 050
     Dates: start: 20160824, end: 20180923
  5. DUODOPA [Suspect]
     Active Substance: CARBIDOPA\LEVODOPA
     Dosage: MD: 2.2 ML, CRD: 1.2 ML/H, ED: 0.5 ML 16H THERAPY
     Route: 050
  6. DUODOPA [Suspect]
     Active Substance: CARBIDOPA\LEVODOPA
     Dosage: MD: 2.2 ML CRD: 1.5 ML/H, ED: 0.5 ML?16H THERAPY
     Route: 050
     Dates: start: 201901, end: 20190213
  7. CANNABIS DROPS [Concomitant]
     Indication: PRODUCT USED FOR UNKNOWN INDICATION
     Dates: start: 201901, end: 20190130
  8. DUODOPA [Suspect]
     Active Substance: CARBIDOPA\LEVODOPA
     Dosage: MD: 2.2 ML, CRD: 1.4 ML/H, ED: 0.5 ML 16H THERAPY
     Route: 050
     Dates: start: 201901, end: 20190129
  9. DUODOPA [Suspect]
     Active Substance: CARBIDOPA\LEVODOPA
     Dosage: MD: 2.2 ML, CRD: 1.3 ML/H, ED: 0.5 ML 16H THERAPY
     Route: 050
     Dates: start: 20181130

REACTIONS (6)
  - Death [Fatal]
  - Terminal state [Unknown]
  - Muscle rigidity [Unknown]
  - Muscle spasms [Recovering/Resolving]
  - Dystonia [Unknown]
  - Unresponsive to stimuli [Recovered/Resolved]

NARRATIVE: CASE EVENT DATE: 20190213
